FAERS Safety Report 9266684 (Version 2)
Quarter: 2013Q3

REPORT INFORMATION
  Report Type: Spontaneous
  Country: US (occurrence: US)
  Receive Date: 20130502
  Receipt Date: 20130916
  Transmission Date: 20140515
  Serious: Yes (Hospitalization)
  Sender: FDA-Public Use
  Company Number: US-BAYER-2013-052616

PATIENT
  Age: 37 Year
  Sex: Female
  Weight: 120 kg

DRUGS (7)
  1. YASMIN [Suspect]
  2. YAZ [Suspect]
     Indication: CONTRACEPTION
  3. YAZ [Suspect]
     Indication: ACNE
  4. BEYAZ [Suspect]
  5. ADDERALL [Concomitant]
     Dosage: 15 MG, BID
     Dates: start: 20120417
  6. LOZOL [Concomitant]
     Dosage: 1.25 MG, OM
     Dates: start: 20120417
  7. SYNTHROID [Concomitant]
     Dosage: 25 ?G, DAILY
     Dates: start: 20120417

REACTIONS (1)
  - Pulmonary embolism [Recovering/Resolving]
